FAERS Safety Report 4415976-6 (Version None)
Quarter: 2004Q3

REPORT INFORMATION
  Report Type: 
  Country: None (occurrence: None)
  Receive Date: 20040730
  Receipt Date: 20040723
  Transmission Date: 20050211
  Serious: Yes (Death)
  Sender: FDA-Public Use
  Company Number: GB-JNJFOC-20040505714

PATIENT
  Age: 20 Year
  Sex: Male
  Weight: 126 kg

DRUGS (3)
  1. RISPERDAL CONSTA [Suspect]
     Indication: SCHIZOPHRENIA, DISORGANISED TYPE
     Dosage: SEE IMAGE
     Route: 030
     Dates: start: 20040201, end: 20040426
  2. RISPERDAL CONSTA [Suspect]
     Indication: SCHIZOPHRENIA, DISORGANISED TYPE
     Dosage: SEE IMAGE
     Route: 030
     Dates: start: 20031117
  3. THYROXINE (LEVOTHYROXINE SODIUM) [Concomitant]

REACTIONS (2)
  - PALLOR [None]
  - PANCREATITIS ACUTE [None]
